FAERS Safety Report 7948642-0 (Version None)
Quarter: 2011Q4

REPORT INFORMATION
  Report Type: 
  Country: None (occurrence: None)
  Receive Date: 20111130
  Receipt Date: 20111116
  Transmission Date: 20120403
  Serious: Yes (Other)
  Sender: FDA-Public Use
  Company Number: US-BAYER-2011-081401

PATIENT
  Age: 21 Year
  Sex: Female
  Weight: 74.376 kg

DRUGS (1)
  1. MIRENA [Suspect]
     Indication: CONTRACEPTION
     Dosage: 20 MCG/24HR, CONT
     Route: 015
     Dates: start: 20110801, end: 20110826

REACTIONS (5)
  - GENITAL HAEMORRHAGE [None]
  - DEVICE EXPULSION [None]
  - DYSPAREUNIA [None]
  - ABDOMINAL PAIN [None]
  - AMENORRHOEA [None]
